FAERS Safety Report 10386846 (Version 1)
Quarter: 2014Q1

REPORT INFORMATION
  Report Type: Report from Study
  Country: US (occurrence: None)
  Receive Date: 20140306
  Receipt Date: 20140306
  Transmission Date: 20141002
  Serious: Yes (Hospitalization)
  Sender: FDA-Public Use
  Company Number: 163-21880-13062086

PATIENT
  Age: 66 Year
  Sex: Female

DRUGS (4)
  1. REVLIMID (LENALIDOMIDE) (CAPSULES) [Suspect]
     Indication: PLASMA CELL MYELOMA
     Dosage: 1 IN 2 WEEKS PO
     Dates: start: 20130521
  2. DEXAMETHASONE (DEXAMETHASONE) (UNKNOWN) [Suspect]
     Indication: PLASMA CELL MYELOMA
     Route: 048
     Dates: start: 20130521
  3. SAR650984 (UNKNOWN) [Suspect]
     Indication: PLASMA CELL MYELOMA
     Dosage: 2 IN 28 D
     Route: 042
     Dates: start: 20130521
  4. ANTIBIOTICS (ANTIBIOTICS) [Concomitant]

REACTIONS (1)
  - Pneumonia [None]
